FAERS Safety Report 26177834 (Version 1)
Quarter: 2025Q4

REPORT INFORMATION
  Report Type: Report from Study
  Country: US (occurrence: US)
  Receive Date: 20251219
  Receipt Date: 20251219
  Transmission Date: 20260117
  Serious: Yes (Other)
  Sender: ALEXION PHARMACEUTICALS
  Company Number: US-ASTRAZENECA-202508USA009075US

PATIENT
  Sex: Female

DRUGS (1)
  1. TAGRISSO [Suspect]
     Active Substance: OSIMERTINIB
     Indication: Neoplasm malignant
     Dosage: 80 MILLIGRAM, QD
     Route: 061
     Dates: start: 202505

REACTIONS (4)
  - Neuropathy peripheral [Unknown]
  - Paraesthesia [Unknown]
  - Rash [Unknown]
  - Skin irritation [Unknown]
